FAERS Safety Report 15178087 (Version 2)
Quarter: 2018Q3

REPORT INFORMATION
  Report Type: Spontaneous
  Country: FR (occurrence: FR)
  Receive Date: 20180721
  Receipt Date: 20180721
  Transmission Date: 20181010
  Serious: Yes (Other)
  Sender: FDA-Public Use
  Company Number: FR-AXELLIA-001743

PATIENT
  Age: 69 Year
  Sex: Male

DRUGS (2)
  1. ALFUZOSIN [Interacting]
     Active Substance: ALFUZOSIN
     Indication: URINARY TRACT DISORDER
  2. VORICONAZOLE. [Suspect]
     Active Substance: VORICONAZOLE
     Indication: BRONCHOPULMONARY ASPERGILLOSIS

REACTIONS (2)
  - Drug interaction [Unknown]
  - Blood pressure decreased [Unknown]
